FAERS Safety Report 18528284 (Version 2)
Quarter: 2020Q4

REPORT INFORMATION
  Report Type: Spontaneous
  Country: US (occurrence: US)
  Receive Date: 20201120
  Receipt Date: 20201228
  Transmission Date: 20210114
  Serious: No
  Sender: FDA-Public Use
  Company Number: US-PFIZER INC-2020455320

PATIENT
  Age: 56 Year
  Sex: Female

DRUGS (2)
  1. XELJANZ XR [Suspect]
     Active Substance: TOFACITINIB CITRATE
     Indication: PSORIATIC ARTHROPATHY
     Dosage: 11 MG, DAILY
     Route: 048
     Dates: start: 202011
  2. LEFLUNOMIDE. [Concomitant]
     Active Substance: LEFLUNOMIDE
     Dosage: UNK

REACTIONS (7)
  - Drug ineffective [Unknown]
  - Insomnia [Unknown]
  - Skin lesion [Unknown]
  - Ear disorder [Unknown]
  - Arthropathy [Unknown]
  - Condition aggravated [Unknown]
  - Dry skin [Unknown]
